FAERS Safety Report 8986170 (Version 1)
Quarter: 2012Q4

REPORT INFORMATION
  Report Type: Spontaneous
  Country: US (occurrence: None)
  Receive Date: 20121214
  Receipt Date: 20121214
  Transmission Date: 20130627
  Serious: Yes (Other)
  Sender: FDA-Public Use
  Company Number: ACO_33257_2012

PATIENT
  Age: 46 Year
  Sex: Female

DRUGS (1)
  1. AMPYRA (DALFAMPRIDINE) TABLET [Suspect]
     Indication: DRUG USE FOR UNKNOWN INDICATION
     Dates: start: 2010

REACTIONS (1)
  - Convulsion [None]
